FAERS Safety Report 9585969 (Version 1)
Quarter: 2013Q4

REPORT INFORMATION
  Report Type: Spontaneous
  Country: US (occurrence: None)
  Receive Date: 20131001
  Receipt Date: 20131001
  Transmission Date: 20140711
  Serious: Yes (Death, Hospitalization)
  Sender: FDA-Public Use
  Company Number: UTC-038011

PATIENT
  Age: 62 Year
  Sex: Female
  Weight: 70.45 kg

DRUGS (4)
  1. REMODULIN [Suspect]
     Indication: PULMONARY ARTERIAL HYPERTENSION
     Dosage: 223.2 UG/KG (0.155 UG/KG,1 IN 1 MIN),SUBCUTANEOUS
     Route: 058
     Dates: start: 20021010
  2. TRACLEER (BOSENTAN) [Concomitant]
  3. REVATIO (SILDENAFIL CITRATE) (UNKNOWN) (SILDENAFIL) [Concomitant]
  4. COUMADIN (WARFARIN SODIUM) [Concomitant]

REACTIONS (2)
  - Syncope [None]
  - Dizziness [None]
